FAERS Safety Report 6986557-5 (Version None)
Quarter: 2010Q3

REPORT INFORMATION
  Report Type: 
  Country: None (occurrence: None)
  Receive Date: 20100915
  Receipt Date: 20090713
  Transmission Date: 20110219
  Serious: No
  Sender: FDA-Public Use
  Company Number: US-WYE-H10123309

PATIENT
  Sex: Male

DRUGS (5)
  1. PRISTIQ [Suspect]
     Indication: DEPRESSION
     Route: 048
     Dates: start: 20090601
  2. DIOVAN [Concomitant]
  3. GEMFIBROZIL [Concomitant]
  4. ACTOS [Concomitant]
  5. METFORMIN [Concomitant]

REACTIONS (1)
  - MEDICATION RESIDUE [None]
